FAERS Safety Report 10356309 (Version 35)
Quarter: 2021Q4

REPORT INFORMATION
  Report Type: Other
  Country: CA (occurrence: CA)
  Receive Date: 20140801
  Receipt Date: 20211206
  Transmission Date: 20220303
  Serious: Yes (Hospitalization, Other)
  Sender: FDA-Public Use
  Company Number: CA-ROCHE-1443486

PATIENT
  Age: 64 Year
  Sex: Female

DRUGS (32)
  1. XOLAIR [Suspect]
     Active Substance: OMALIZUMAB
     Indication: Asthma
     Route: 058
     Dates: start: 20130904
  2. XOLAIR [Suspect]
     Active Substance: OMALIZUMAB
     Route: 058
     Dates: start: 20130918
  3. XOLAIR [Suspect]
     Active Substance: OMALIZUMAB
     Route: 058
     Dates: start: 20160420
  4. XOLAIR [Suspect]
     Active Substance: OMALIZUMAB
     Route: 058
     Dates: start: 20160504
  5. XOLAIR [Suspect]
     Active Substance: OMALIZUMAB
     Dosage: RECEIVED 3 TIMES
     Route: 058
  6. XOLAIR [Suspect]
     Active Substance: OMALIZUMAB
     Route: 058
     Dates: start: 20160921
  7. XOLAIR [Suspect]
     Active Substance: OMALIZUMAB
     Route: 058
     Dates: start: 20161005
  8. XOLAIR [Suspect]
     Active Substance: OMALIZUMAB
     Route: 058
     Dates: start: 20170213
  9. XOLAIR [Suspect]
     Active Substance: OMALIZUMAB
     Route: 058
     Dates: start: 20170418
  10. XOLAIR [Suspect]
     Active Substance: OMALIZUMAB
     Route: 058
     Dates: start: 20170502
  11. XOLAIR [Suspect]
     Active Substance: OMALIZUMAB
     Route: 058
     Dates: start: 20170627
  12. XOLAIR [Suspect]
     Active Substance: OMALIZUMAB
     Route: 058
     Dates: start: 2017
  13. XOLAIR [Suspect]
     Active Substance: OMALIZUMAB
     Route: 058
     Dates: start: 20171228
  14. XOLAIR [Suspect]
     Active Substance: OMALIZUMAB
     Route: 058
  15. XOLAIR [Suspect]
     Active Substance: OMALIZUMAB
     Route: 058
     Dates: start: 20180123
  16. XOLAIR [Suspect]
     Active Substance: OMALIZUMAB
     Route: 058
     Dates: start: 20180906
  17. XOLAIR [Suspect]
     Active Substance: OMALIZUMAB
     Route: 058
     Dates: start: 20180920
  18. XOLAIR [Suspect]
     Active Substance: OMALIZUMAB
     Route: 058
     Dates: start: 20181227
  19. XOLAIR [Suspect]
     Active Substance: OMALIZUMAB
     Route: 058
     Dates: start: 20191003
  20. XOLAIR [Suspect]
     Active Substance: OMALIZUMAB
     Route: 058
     Dates: start: 20191211
  21. XOLAIR [Suspect]
     Active Substance: OMALIZUMAB
     Route: 058
     Dates: start: 20200205
  22. XOLAIR [Suspect]
     Active Substance: OMALIZUMAB
     Route: 058
     Dates: start: 20200219
  23. XOLAIR [Suspect]
     Active Substance: OMALIZUMAB
     Route: 058
  24. VENTOLIN [Suspect]
     Active Substance: ALBUTEROL SULFATE
     Indication: Bronchitis
     Route: 065
  25. VENTOLIN [Suspect]
     Active Substance: ALBUTEROL SULFATE
     Indication: Lower respiratory tract infection
  26. CETIRIZINE HYDROCHLORIDE [Concomitant]
     Active Substance: CETIRIZINE HYDROCHLORIDE
     Indication: Product used for unknown indication
     Dosage: (BEFORE AND AFTER OMALIZUMAB INJECTION)
     Route: 065
     Dates: start: 20130904
  27. PREDNISONE [Concomitant]
     Active Substance: PREDNISONE
     Indication: Product used for unknown indication
     Dosage: UNK
     Route: 065
  28. SPIRIVA [Concomitant]
     Active Substance: TIOTROPIUM BROMIDE MONOHYDRATE
     Indication: Product used for unknown indication
     Dosage: UNK
     Route: 065
  29. ALVESCO [Concomitant]
     Active Substance: CICLESONIDE
     Indication: Product used for unknown indication
     Dosage: UNK
     Route: 065
  30. SEREVENT DISKUS [Concomitant]
     Active Substance: SALMETEROL XINAFOATE
     Indication: Product used for unknown indication
     Dosage: UNK
     Route: 065
  31. CETIRIZINE [Concomitant]
     Active Substance: CETIRIZINE HYDROCHLORIDE
     Indication: Product used for unknown indication
     Dosage: 2 DF, QD
     Route: 065
  32. BENADRYL [Concomitant]
     Active Substance: DIPHENHYDRAMINE HYDROCHLORIDE

REACTIONS (53)
  - Pneumonia viral [Unknown]
  - Lower respiratory tract infection [Recovered/Resolved]
  - Obstructive airways disorder [Unknown]
  - Restlessness [Unknown]
  - Agitation [Unknown]
  - Aphonia [Unknown]
  - Lip discolouration [Unknown]
  - Bronchitis [Unknown]
  - Emphysema [Unknown]
  - Anxiety [Unknown]
  - Arthralgia [Unknown]
  - Dyspnoea [Unknown]
  - Nasopharyngitis [Unknown]
  - Hypersensitivity [Unknown]
  - Headache [Unknown]
  - Weight increased [Unknown]
  - Cough [Unknown]
  - Illness [Unknown]
  - Forced expiratory volume decreased [Not Recovered/Not Resolved]
  - Sensitivity to weather change [Unknown]
  - Humidity intolerance [Unknown]
  - Middle insomnia [Unknown]
  - Mycotic allergy [Unknown]
  - Seasonal allergy [Unknown]
  - Asthma [Recovering/Resolving]
  - Feeling abnormal [Unknown]
  - Pruritus [Unknown]
  - Irritability [Unknown]
  - Productive cough [Not Recovered/Not Resolved]
  - Smoke sensitivity [Unknown]
  - Injection site hypersensitivity [Unknown]
  - Insomnia [Unknown]
  - Discomfort [Unknown]
  - Incorrect dose administered [Unknown]
  - Nervousness [Unknown]
  - Dyspnoea exertional [Unknown]
  - Mood swings [Unknown]
  - Malaise [Unknown]
  - Lower respiratory tract congestion [Recovered/Resolved]
  - Hyperphagia [Unknown]
  - Wheezing [Unknown]
  - Therapeutic response decreased [Unknown]
  - Nasal pruritus [Unknown]
  - Epistaxis [Unknown]
  - Injection site extravasation [Unknown]
  - Photophobia [Unknown]
  - Injection site pain [Recovered/Resolved]
  - Eye irritation [Unknown]
  - Fatigue [Unknown]
  - Urticaria [Unknown]
  - Smoke sensitivity [Unknown]
  - Food allergy [Unknown]
  - Oxygen saturation decreased [Unknown]

NARRATIVE: CASE EVENT DATE: 20130904
